FAERS Safety Report 9680533 (Version 1)
Quarter: 2013Q4

REPORT INFORMATION
  Report Type: Spontaneous
  Country: US (occurrence: US)
  Receive Date: 20131111
  Receipt Date: 20131111
  Transmission Date: 20140711
  Serious: No
  Sender: FDA-Public Use
  Company Number: US-PFIZER INC-2013317232

PATIENT
  Age: 75 Year
  Sex: Female
  Weight: 72.56 kg

DRUGS (2)
  1. ADVIL [Suspect]
     Indication: PAIN
     Dosage: 200 MG, TWO TIMES A DAY
     Route: 048
     Dates: start: 20131105
  2. ADVIL [Suspect]
     Indication: SWELLING

REACTIONS (1)
  - Vomiting [Unknown]
